FAERS Safety Report 19487097 (Version 2)
Quarter: 2023Q2

REPORT INFORMATION
  Report Type: Spontaneous
  Country: US (occurrence: US)
  Receive Date: 20210702
  Receipt Date: 20230609
  Transmission Date: 20230721
  Serious: Yes (Other)
  Sender: FDA-Public Use
  Company Number: US-JNJFOC-20210658091

PATIENT
  Age: 5 Decade
  Sex: Female

DRUGS (1)
  1. ELMIRON [Suspect]
     Active Substance: PENTOSAN POLYSULFATE SODIUM
     Indication: Cystitis interstitial
     Dosage: 200 MG TWICE DAILY INITIALLY, DROPPED TO 100 MG TWICE DAILY
     Route: 048
     Dates: start: 200508, end: 201908

REACTIONS (5)
  - Dry age-related macular degeneration [Unknown]
  - Retinal dystrophy [Unknown]
  - Pigmentary maculopathy [Unknown]
  - Maculopathy [Unknown]
  - Off label use [Unknown]

NARRATIVE: CASE EVENT DATE: 20050801
